FAERS Safety Report 9145870 (Version 1)
Quarter: 2013Q1

REPORT INFORMATION
  Report Type: Spontaneous
  Country: US (occurrence: None)
  Receive Date: 20130227
  Receipt Date: 20130227
  Transmission Date: 20140127
  Serious: No
  Sender: FDA-Public Use
  Company Number: None

PATIENT
  Age: 59 Year
  Sex: Male
  Weight: 92.3 kg

DRUGS (1)
  1. PRAZOSIN [Suspect]
     Indication: NIGHTMARE
     Dosage: 1 MG HS PO
     Route: 048
     Dates: start: 20121012, end: 20121018

REACTIONS (2)
  - Urticaria [None]
  - Pruritus generalised [None]
